FAERS Safety Report 19085687 (Version 2)
Quarter: 2021Q2

REPORT INFORMATION
  Report Type: Report from Study
  Country: JP (occurrence: JP)
  Receive Date: 20210402
  Receipt Date: 20210428
  Transmission Date: 20210717
  Serious: Yes (Hospitalization, Other)
  Sender: FDA-Public Use
  Company Number: JP-TEVA-2021-JP-1897443

PATIENT
  Age: 70 Year
  Sex: Male
  Weight: 63 kg

DRUGS (14)
  1. DOMPERIDONE [Concomitant]
     Active Substance: DOMPERIDONE
  2. BETANIS [Concomitant]
     Active Substance: MIRABEGRON
  3. MAGMITT [Concomitant]
     Active Substance: MAGNESIUM OXIDE
  4. LOXONIN [Concomitant]
     Active Substance: LOXOPROFEN SODIUM
  5. ROPINIROLE HYDROCHLORIDE. [Concomitant]
     Active Substance: ROPINIROLE HYDROCHLORIDE
     Dates: start: 20201111
  6. MEQUITAZINE [Concomitant]
     Active Substance: MEQUITAZINE
  7. MUCOBULIN [Concomitant]
     Active Substance: AMBROXOL HYDROCHLORIDE
  8. TOVIAZ [Concomitant]
     Active Substance: FESOTERODINE FUMARATE
  9. REQUIP [Concomitant]
     Active Substance: ROPINIROLE HYDROCHLORIDE
     Route: 065
     Dates: start: 20210119
  10. TRANEXAMIC ACID. [Concomitant]
     Active Substance: TRANEXAMIC ACID
  11. RASAGILINE MESYLATE. [Suspect]
     Active Substance: RASAGILINE MESYLATE
     Indication: PARKINSON^S DISEASE
     Dosage: 1 MILLIGRAM DAILY;
     Route: 065
     Dates: start: 20190327
  12. AMBROXOL HYDROCHLORIDE [Concomitant]
     Active Substance: AMBROXOL HYDROCHLORIDE
  13. MAGNESIUM OXIDE. [Concomitant]
     Active Substance: MAGNESIUM OXIDE
  14. LEVODOPA [Concomitant]
     Active Substance: LEVODOPA

REACTIONS (1)
  - Basal cell carcinoma [Recovered/Resolved]

NARRATIVE: CASE EVENT DATE: 202012
